FAERS Safety Report 6634731-X (Version None)
Quarter: 2010Q1

REPORT INFORMATION
  Report Type: 
  Country: None (occurrence: None)
  Receive Date: 20100315
  Receipt Date: 20100212
  Transmission Date: 20100710
  Serious: No
  Sender: FDA-Public Use
  Company Number: US-BAYER-200944013NA

PATIENT
  Age: 29 Year
  Sex: Male
  Weight: 66 kg

DRUGS (2)
  1. ULTRAVIST (PHARMACY BULK) [Suspect]
     Indication: COMPUTERISED TOMOGRAM
     Dosage: TOTAL DAILY DOSE: 150 ML  UNIT DOSE: 300 ML
     Route: 042
     Dates: start: 20091222, end: 20091222
  2. VOLUMEN [Concomitant]
     Dosage: 1 HOUR PRIOR (1 PM)
     Route: 048
     Dates: start: 20091222, end: 20091222

REACTIONS (2)
  - NASAL CONGESTION [None]
  - SNEEZING [None]
